FAERS Safety Report 12191733 (Version 1)
Quarter: 2016Q1

REPORT INFORMATION
  Report Type: Spontaneous
  Country: US (occurrence: US)
  Receive Date: 20160318
  Receipt Date: 20160318
  Transmission Date: 20160526
  Serious: No
  Sender: FDA-Public Use
  Company Number: US-PFIZER INC-2016114781

PATIENT
  Age: 57 Year
  Sex: Male
  Weight: 129 kg

DRUGS (4)
  1. BENADRYL [Concomitant]
     Active Substance: DIPHENHYDRAMINE HYDROCHLORIDE
     Indication: MUSCLE SPASMS
     Dosage: UNK UNK, AS NEEDED
  2. ADVIL PM [Suspect]
     Active Substance: DIPHENHYDRAMINE CITRATE\IBUPROFEN
     Indication: MUSCLE SPASMS
  3. ADVIL PM [Suspect]
     Active Substance: DIPHENHYDRAMINE CITRATE\IBUPROFEN
     Indication: RESTLESSNESS
  4. ADVIL PM [Suspect]
     Active Substance: DIPHENHYDRAMINE CITRATE\IBUPROFEN
     Indication: INSOMNIA
     Dosage: 1 DF, 1X/DAY
     Dates: start: 201602, end: 20160222

REACTIONS (6)
  - Blood pressure increased [Not Recovered/Not Resolved]
  - Influenza [Unknown]
  - Product use issue [Recovered/Resolved]
  - Dizziness [Not Recovered/Not Resolved]
  - Head discomfort [Not Recovered/Not Resolved]
  - Nausea [Not Recovered/Not Resolved]

NARRATIVE: CASE EVENT DATE: 201602
